FAERS Safety Report 24176436 (Version 1)
Quarter: 2024Q3

REPORT INFORMATION
  Report Type: Spontaneous
  Country: CA (occurrence: CA)
  Receive Date: 20240806
  Receipt Date: 20240806
  Transmission Date: 20241017
  Serious: Yes (Other)
  Sender: SANDOZ
  Company Number: CA-SANDOZ-SDZ2024CA002334

PATIENT

DRUGS (1)
  1. CIPROFLOXACIN [Suspect]
     Active Substance: CIPROFLOXACIN
     Indication: Prostatitis
     Dosage: UNK, 2 EVERY 1 DAYS
     Route: 065

REACTIONS (15)
  - Abdominal pain [Unknown]
  - Agitation [Unknown]
  - Anxiety [Unknown]
  - Dehydration [Unknown]
  - Diarrhoea [Unknown]
  - Insomnia [Unknown]
  - Intrusive thoughts [Unknown]
  - Malnutrition [Unknown]
  - Mania [Unknown]
  - Muscular weakness [Unknown]
  - Negative thoughts [Unknown]
  - Panic attack [Unknown]
  - Phobia [Unknown]
  - Tremor [Unknown]
  - Vertigo [Unknown]
